FAERS Safety Report 11864528 (Version 1)
Quarter: 2015Q4

REPORT INFORMATION
  Report Type: Spontaneous
  Country: BR (occurrence: BR)
  Receive Date: 20151223
  Receipt Date: 20151223
  Transmission Date: 20160305
  Serious: Yes (Death, Other)
  Sender: FDA-Public Use
  Company Number: BR-JNJFOC-20151219578

PATIENT
  Age: 73 Year
  Sex: Female

DRUGS (1)
  1. REMICADE [Suspect]
     Active Substance: INFLIXIMAB
     Indication: PSORIATIC ARTHROPATHY
     Route: 042

REACTIONS (4)
  - Death [Fatal]
  - Uterine cancer [Unknown]
  - American trypanosomiasis [Unknown]
  - Lung disorder [Unknown]

NARRATIVE: CASE EVENT DATE: 20141005
